FAERS Safety Report 23208286 (Version 1)
Quarter: 2023Q4

REPORT INFORMATION
  Report Type: Spontaneous
  Country: JP (occurrence: JP)
  Receive Date: 20231121
  Receipt Date: 20231121
  Transmission Date: 20240109
  Serious: Yes (Other)
  Sender: FDA-Public Use
  Company Number: JP-CHUGAI-2023040489

PATIENT
  Age: 5 Year
  Sex: Female

DRUGS (2)
  1. AVASTIN [Suspect]
     Active Substance: BEVACIZUMAB
     Indication: Malignant glioma
     Dosage: 140 MILLIGRAM
     Route: 065
  2. AVASTIN [Suspect]
     Active Substance: BEVACIZUMAB
     Indication: Brain neoplasm
     Dosage: 100 MILLIGRAM
     Route: 065
     Dates: start: 202308

REACTIONS (4)
  - Surgery [Unknown]
  - Proteinuria [Unknown]
  - Weight increased [Unknown]
  - Off label use [Unknown]
